FAERS Safety Report 5995304-5 (Version None)
Quarter: 2008Q4

REPORT INFORMATION
  Report Type: 
  Country: None (occurrence: None)
  Receive Date: 20081212
  Receipt Date: 20080926
  Transmission Date: 20090506
  Serious: No
  Sender: FDA-Public Use
  Company Number: US-ABBOTT-08P-163-0478411-00

PATIENT
  Sex: Female

DRUGS (3)
  1. HUMIRA [Suspect]
     Indication: RHEUMATOID ARTHRITIS
     Route: 058
     Dates: start: 20080101
  2. METHOTREXATE [Concomitant]
     Indication: RHEUMATOID ARTHRITIS
     Route: 048
     Dates: start: 20070101
  3. FOLIC ACID [Concomitant]
     Indication: VITAMIN SUPPLEMENTATION
     Route: 048
     Dates: start: 20070101

REACTIONS (3)
  - INJECTION SITE ERYTHEMA [None]
  - INJECTION SITE NODULE [None]
  - INJECTION SITE URTICARIA [None]
